FAERS Safety Report 5000956-2 (Version None)
Quarter: 2006Q2

REPORT INFORMATION
  Report Type: 
  Country: None (occurrence: None)
  Receive Date: 20060512
  Receipt Date: 20060504
  Transmission Date: 20061013
  Serious: Yes (Hospitalization)
  Sender: FDA-Public Use
  Company Number: FR-ROCHE-446972

PATIENT
  Age: 50 Year
  Sex: Female
  Weight: 75 kg

DRUGS (11)
  1. KYTRIL [Suspect]
     Route: 042
     Dates: start: 20050725, end: 20050823
  2. MABTHERA [Suspect]
     Route: 042
     Dates: start: 20050725, end: 20050823
  3. MABTHERA [Suspect]
     Route: 042
     Dates: start: 20050825
  4. VEPESID [Suspect]
     Dosage: DRUG REPORTED AS ^VEPESIDE SANDOZ^
     Route: 042
     Dates: start: 20050725, end: 20050823
  5. VEPESID [Suspect]
     Route: 042
     Dates: start: 20050825
  6. ARACYTINE [Suspect]
     Route: 042
     Dates: start: 20050729, end: 20050823
  7. ARACYTINE [Suspect]
     Route: 042
     Dates: start: 20050825
  8. DEXAMETHASONE [Suspect]
     Route: 042
     Dates: start: 20050725, end: 20050823
  9. DEXAMETHASONE [Suspect]
     Route: 042
     Dates: start: 20050825
  10. CISPLATIN [Suspect]
     Route: 042
     Dates: start: 20050725, end: 20050823
  11. CISPLATIN [Suspect]
     Route: 042
     Dates: start: 20050825

REACTIONS (1)
  - AGRANULOCYTOSIS [None]
